FAERS Safety Report 6913670-0 (Version None)
Quarter: 2010Q3

REPORT INFORMATION
  Report Type: 
  Country: None (occurrence: None)
  Receive Date: 20100809
  Receipt Date: 20100804
  Transmission Date: 20110219
  Serious: Yes (Life-Threatening)
  Sender: FDA-Public Use
  Company Number: JP-JNJFOC-20100708915

PATIENT
  Sex: Male

DRUGS (2)
  1. TOPIRAMATE [Suspect]
     Indication: EPILEPSY
     Route: 048
  2. PHENYTOIN SODIUM [Concomitant]
     Indication: EPILEPSY
     Route: 048

REACTIONS (2)
  - METABOLIC ACIDOSIS [None]
  - RENAL IMPAIRMENT [None]
